FAERS Safety Report 11068301 (Version 1)
Quarter: 2015Q2

REPORT INFORMATION
  Report Type: Spontaneous
  Country: US (occurrence: None)
  Receive Date: 20150424
  Receipt Date: 20150424
  Transmission Date: 20150821
  Serious: Yes (Life-Threatening, Hospitalization)
  Sender: FDA-Public Use
  Company Number: None

PATIENT
  Age: 79 Year
  Sex: Female
  Weight: 45.36 kg

DRUGS (1)
  1. VELCADE [Suspect]
     Active Substance: BORTEZOMIB
     Indication: PLASMA CELL MYELOMA
     Dosage: 2.5 MG  ONCE PER WEEK /3WK
     Route: 058
     Dates: start: 20131104, end: 20140708

REACTIONS (2)
  - Abdominal distension [None]
  - Pericarditis [None]

NARRATIVE: CASE EVENT DATE: 20140813
